FAERS Safety Report 9450271 (Version 1)
Quarter: 2013Q3

REPORT INFORMATION
  Report Type: Spontaneous
  Country: BE (occurrence: BE)
  Receive Date: 20130809
  Receipt Date: 20130809
  Transmission Date: 20140515
  Serious: Yes (Life-Threatening, Hospitalization)
  Sender: FDA-Public Use
  Company Number: BE-SANOFI-AVENTIS-2013SA077452

PATIENT
  Age: 79 Year
  Sex: Female

DRUGS (15)
  1. RIFADINE [Suspect]
     Indication: INTERVERTEBRAL DISCITIS
     Dosage: 300 MG
     Route: 048
     Dates: start: 20130318
  2. FLUCONAZOLE [Suspect]
     Indication: INTERVERTEBRAL DISCITIS
     Dosage: DOSE ON THE DAY OF DIALYSIS
     Route: 042
     Dates: start: 20130514, end: 20130530
  3. FLUCONAZOLE [Suspect]
     Indication: CANDIDA SEPSIS
     Dosage: DOSE ON THE DAY OF DIALYSIS
     Route: 042
     Dates: start: 20130514, end: 20130530
  4. AMUKIN [Concomitant]
     Indication: INTERVERTEBRAL DISCITIS
     Dosage: ON DAY OF DIALYSIS
     Route: 042
     Dates: start: 20130318, end: 20130604
  5. VANCOMYCINE [Concomitant]
     Indication: INTERVERTEBRAL DISCITIS
     Dosage: ON DAY OF DIALYSIS
     Route: 042
     Dates: start: 20130318, end: 20130604
  6. CYMEVENE [Concomitant]
     Indication: CYTOMEGALOVIRUS INFECTION
     Dosage: ON DAY OF DIALYSIS
     Route: 042
     Dates: start: 20130514, end: 20130604
  7. PARACETAMOL [Concomitant]
     Indication: PAIN
     Route: 042
  8. ALPHA ^LEO^ [Concomitant]
     Indication: HYPERPARATHYROIDISM
     Dosage: THERAPY START: LONG TERM TREATMENT; 0.25 MCG
     Route: 048
  9. FOLAVIT [Concomitant]
     Indication: VITAMIN SUPPLEMENTATION
     Dosage: THERAPY START: LONG TERM TREATMENT; 4 G
     Route: 048
  10. LITICAN [Concomitant]
     Indication: NAUSEA
     Dosage: THERAPY START: LONG TERM TREATMENT
     Route: 048
  11. PERINDOPRIL [Concomitant]
     Indication: HYPERTENSION
     Dosage: THERAPY START: LONG TERM TREATMENT (NOS)
     Route: 048
  12. TRADONAL [Concomitant]
     Indication: PAIN
     Dosage: THERAPY START: LONG TERM TREATMENT (NOS); FREQUENCY: IN CASE OF PAIN
     Route: 048
  13. ACTRAPID HUMAN [Concomitant]
     Indication: DIABETES MELLITUS
     Dosage: THERAPY START: LONG TERM TREATMENT (NOS); FREQUENCY: ACCORDING TO SCHEME
     Route: 058
  14. LANTUS [Concomitant]
     Dosage: THERAPY START: LONG TERM TREATMENT (NOS); DOSE: 120 IN THE EVENING
     Route: 058
  15. PANTOMED [Concomitant]
     Dosage: THERAPY START: LONG TERM TREATMENT (NOS); DOSE: 1 PER DAY
     Route: 042

REACTIONS (2)
  - Candida sepsis [Recovered/Resolved]
  - Drug interaction [Unknown]
